FAERS Safety Report 19677820 (Version 1)
Quarter: 2021Q3

REPORT INFORMATION
  Report Type: Spontaneous
  Country: US (occurrence: US)
  Receive Date: 20210810
  Receipt Date: 20210810
  Transmission Date: 20211014
  Serious: No
  Sender: FDA-Public Use
  Company Number: US-BEH-2021134645

PATIENT
  Age: 28 Year
  Sex: Female
  Weight: 92.06 kg

DRUGS (1)
  1. HIZENTRA [Suspect]
     Active Substance: HUMAN IMMUNOGLOBULIN G
     Indication: MULTIFOCAL MOTOR NEUROPATHY
     Dosage: UNK, QW
     Route: 058
     Dates: start: 202106

REACTIONS (4)
  - No adverse event [Unknown]
  - Weight fluctuation [Unknown]
  - Headache [Unknown]
  - Off label use [Unknown]
